FAERS Safety Report 7768495-3 (Version None)
Quarter: 2011Q3

REPORT INFORMATION
  Report Type: 
  Country: None (occurrence: None)
  Receive Date: 20110922
  Receipt Date: 20110207
  Transmission Date: 20111222
  Serious: No
  Sender: FDA-Public Use
  Company Number: US-ASTRAZENECA-2011SE06933

PATIENT
  Age: 24 Year
  Sex: Female
  Weight: 65.8 kg

DRUGS (4)
  1. CELEXA [Concomitant]
     Indication: DEPRESSION
  2. VISTARIL [Concomitant]
     Indication: ANXIETY
  3. SEROQUEL XR [Suspect]
     Indication: BIPOLAR DISORDER
     Route: 048
  4. TRAZODONE HCL [Concomitant]

REACTIONS (3)
  - TREMOR [None]
  - WEIGHT INCREASED [None]
  - DRUG DOSE OMISSION [None]
